FAERS Safety Report 24878112 (Version 1)
Quarter: 2025Q1

REPORT INFORMATION
  Report Type: Spontaneous
  Country: JP (occurrence: JP)
  Receive Date: 20250123
  Receipt Date: 20250123
  Transmission Date: 20250408
  Serious: Yes (Life-Threatening, Hospitalization)
  Sender: MYLAN
  Company Number: JP-MYLANLABS-2025M1004557

PATIENT
  Age: 16 Year
  Sex: Male

DRUGS (12)
  1. ENALAPRIL [Suspect]
     Active Substance: ENALAPRIL
     Indication: Dilated cardiomyopathy
     Route: 065
  2. ENALAPRIL [Suspect]
     Active Substance: ENALAPRIL
     Indication: Pulse abnormal
  3. DOBUTAMINE [Suspect]
     Active Substance: DOBUTAMINE HYDROCHLORIDE
     Indication: Dilated cardiomyopathy
     Dosage: 1 MICROGRAM/KILOGRAM, QMINUTE
     Route: 042
  4. DOBUTAMINE [Suspect]
     Active Substance: DOBUTAMINE HYDROCHLORIDE
     Indication: Pulse abnormal
     Dosage: 2 MICROGRAM/KILOGRAM, QMINUTE
     Route: 042
  5. CARVEDILOL [Suspect]
     Active Substance: CARVEDILOL
     Indication: Dilated cardiomyopathy
     Dosage: 0.625 MILLIGRAM, QD
     Route: 065
  6. CARVEDILOL [Suspect]
     Active Substance: CARVEDILOL
     Indication: Pulse abnormal
     Dosage: 1.25 MILLIGRAM, QD
     Route: 065
  7. AZOSEMIDE [Suspect]
     Active Substance: AZOSEMIDE
     Indication: Dilated cardiomyopathy
     Route: 065
  8. AZOSEMIDE [Suspect]
     Active Substance: AZOSEMIDE
     Indication: Pulse abnormal
  9. SPIRONOLACTONE [Suspect]
     Active Substance: SPIRONOLACTONE
     Indication: Dilated cardiomyopathy
     Route: 065
  10. SPIRONOLACTONE [Suspect]
     Active Substance: SPIRONOLACTONE
     Indication: Pulse abnormal
  11. MILRINONE [Suspect]
     Active Substance: MILRINONE
     Indication: Dilated cardiomyopathy
     Dosage: 0.125 MICROGRAM/KILOGRAM, QMINUTE
     Route: 042
  12. MILRINONE [Suspect]
     Active Substance: MILRINONE
     Indication: Pulse abnormal
     Dosage: 0.25 MICROGRAM/KILOGRAM, QMINUTE
     Route: 042

REACTIONS (3)
  - Drug ineffective [Unknown]
  - Fatigue [Unknown]
  - Nausea [Unknown]
